FAERS Safety Report 20100612 (Version 1)
Quarter: 2021Q4

REPORT INFORMATION
  Report Type: Spontaneous
  Country: US (occurrence: US)
  Receive Date: 20211123
  Receipt Date: 20211123
  Transmission Date: 20220303
  Serious: No
  Sender: FDA-Public Use
  Company Number: US-ELI_LILLY_AND_COMPANY-US202111009779

PATIENT
  Sex: Female

DRUGS (1)
  1. CYMBALTA [Suspect]
     Active Substance: DULOXETINE HYDROCHLORIDE
     Indication: Product used for unknown indication
     Dosage: 30 MG, UNKNOWN
     Route: 065

REACTIONS (6)
  - Pain [Unknown]
  - Oesophageal pain [Unknown]
  - Chest pain [Unknown]
  - Feeling jittery [Unknown]
  - Tremor [Unknown]
  - Hypersensitivity [Unknown]
